FAERS Safety Report 21042185 (Version 1)
Quarter: 2022Q3

REPORT INFORMATION
  Report Type: Spontaneous
  Country: TR (occurrence: TR)
  Receive Date: 20220705
  Receipt Date: 20220705
  Transmission Date: 20221027
  Serious: Yes (Hospitalization, Other)
  Sender: FDA-Public Use
  Company Number: TR-SCIEGENP-2022SCLIT00492

PATIENT
  Age: 19 Year
  Sex: Male

DRUGS (2)
  1. PREGABALIN [Suspect]
     Active Substance: PREGABALIN
     Indication: Euphoric mood
     Dosage: 900-MG/DAY FOR 6MONTHS
     Route: 065
  2. PHENPROBAMATE [Concomitant]
     Active Substance: PHENPROBAMATE
     Dosage: UPTO 4 GRAMS FOR 6 MONTHS
     Route: 065

REACTIONS (1)
  - Drug abuse [Unknown]
